FAERS Safety Report 18644291 (Version 1)
Quarter: 2020Q4

REPORT INFORMATION
  Report Type: Spontaneous
  Country: NO (occurrence: NO)
  Receive Date: 20201221
  Receipt Date: 20201221
  Transmission Date: 20210114
  Serious: Yes (Death)
  Sender: FDA-Public Use
  Company Number: NO-ASTRAZENECA-2020SF70396

PATIENT
  Age: 81 Year
  Sex: Male

DRUGS (1)
  1. DURVALUMAB. [Suspect]
     Active Substance: DURVALUMAB
     Indication: LUNG NEOPLASM MALIGNANT
     Route: 042
     Dates: start: 20200924, end: 20201022

REACTIONS (3)
  - Oxygen saturation decreased [Fatal]
  - Dyspnoea [Fatal]
  - Pneumonitis [Fatal]

NARRATIVE: CASE EVENT DATE: 20201130
